FAERS Safety Report 4614113-2 (Version None)
Quarter: 2005Q1

REPORT INFORMATION
  Report Type: 
  Country: None (occurrence: None)
  Receive Date: 20050316
  Receipt Date: 20050301
  Transmission Date: 20050727
  Serious: Yes (Other)
  Sender: FDA-Public Use
  Company Number: GBS050316791

PATIENT
  Age: 77 Year
  Sex: Female

DRUGS (3)
  1. EVISTA [Suspect]
     Indication: OSTEOPOROSIS
     Dosage: 60 MG
     Dates: start: 20010514
  2. VITAMIN D [Concomitant]
  3. CALCIUM GLUCONATE [Concomitant]

REACTIONS (2)
  - CONDITION AGGRAVATED [None]
  - RENAL DISORDER [None]
